FAERS Safety Report 4755540-2 (Version None)
Quarter: 2005Q3

REPORT INFORMATION
  Report Type: 
  Country: None (occurrence: None)
  Receive Date: 20050830
  Receipt Date: 20050511
  Transmission Date: 20060218
  Serious: No
  Sender: FDA-Public Use
  Company Number: US-BRISTOL-MYERS SQUIBB COMPANY-12964680

PATIENT
  Age: 55 Year
  Sex: Female
  Weight: 74 kg

DRUGS (14)
  1. ABILIFY [Suspect]
     Indication: BIPOLAR DISORDER
     Route: 048
     Dates: start: 20040101
  2. ABILIFY [Suspect]
     Route: 048
  3. ATENOLOL [Concomitant]
  4. CYMBALTA [Concomitant]
  5. FOSAMAX [Concomitant]
  6. LAMICTAL [Concomitant]
  7. MIRALAX [Concomitant]
  8. MOBIC [Concomitant]
  9. RITALIN [Concomitant]
  10. SYNTHROID [Concomitant]
  11. ULTRAM [Concomitant]
  12. ZELNORM [Concomitant]
  13. DICLOFENAC [Concomitant]
     Indication: BACK PAIN
     Dates: start: 20050605
  14. PROZAC [Concomitant]

REACTIONS (9)
  - BACK PAIN [None]
  - BLOOD CHOLESTEROL INCREASED [None]
  - BLOOD GLUCOSE INCREASED [None]
  - MEMORY IMPAIRMENT [None]
  - MUSCLE RIGIDITY [None]
  - NERVOUSNESS [None]
  - PAIN IN EXTREMITY [None]
  - RHEUMATOID ARTHRITIS [None]
  - WEIGHT LOSS POOR [None]
